FAERS Safety Report 8421871 (Version 2)
Quarter: 2013Q1

REPORT INFORMATION
  Report Type: Spontaneous
  Country: FR (occurrence: None)
  Receive Date: 20120210
  Receipt Date: 20130125
  Transmission Date: 20140127
  Serious: Yes (Hospitalization, Other)
  Sender: FDA-Public Use
  Company Number: 216649

PATIENT
  Age: 89 Year
  Sex: Female

DRUGS (7)
  1. CALCIPOTRIENE [Suspect]
     Indication: PSORIASIS
     Dosage: 34.59G PER WEEK,TOPICAL
     Route: 061
  2. QUININE SULFATE [Suspect]
     Indication: PRODUCT USED FOR UNKNOWN INDICATION
     Dosage: 120 MG
  3. CLOBETASONE [Suspect]
     Indication: PRODUCT USED FOR UNKNOWN INDICATION
     Dosage: TOPICAL
     Route: 061
  4. THIAMINE CHLORHYRATE (THIAMINE) [Concomitant]
  5. ACETAMINOPHEN [Concomitant]
  6. PROPRANOLOL CHLORHYDRATE LP (PROPRANOLOL HYDROCHLORIDE) [Concomitant]
  7. ERGOCALCIFEROL [Concomitant]

REACTIONS (13)
  - Thrombocytopenia [None]
  - Blood calcium increased [None]
  - Blood phosphorus decreased [None]
  - Blood albumin increased [None]
  - Fall [None]
  - Asthenia [None]
  - Altered state of consciousness [None]
  - Delirium [None]
  - Dehydration [None]
  - Hypercalcaemia [None]
  - Off label use [None]
  - Hypophosphataemia [None]
  - Pulmonary mass [None]
